FAERS Safety Report 7451047-2 (Version None)
Quarter: 2011Q2

REPORT INFORMATION
  Report Type: 
  Country: None (occurrence: None)
  Receive Date: 20110429
  Receipt Date: 20110429
  Transmission Date: 20111010
  Serious: Yes (Hospitalization)
  Sender: FDA-Public Use
  Company Number: None

PATIENT
  Sex: Male
  Weight: 74 kg

DRUGS (3)
  1. BEVACIZUMAB LAST DOSE 03/15/2011 1110MG [Suspect]
     Indication: PROSTATE CANCER
     Dosage: 15 MG/M^2 Q 21 DAYS IV
     Route: 042
     Dates: start: 20101217, end: 20110315
  2. RAD 001 LAST DOSE UNKNOWN [Suspect]
     Indication: PROSTATE CANCER
     Dosage: 2.5 MG DAILY PO
     Route: 048
     Dates: start: 20101218
  3. DOCETAXEL [Suspect]
     Indication: PROSTATE CANCER
     Dosage: 75 MG/M^2 Q 21 DAYS IV
     Route: 042
     Dates: start: 20101217, end: 20110315

REACTIONS (9)
  - CEREBELLAR INFARCTION [None]
  - HYPOXIA [None]
  - COUGH [None]
  - PYREXIA [None]
  - CEREBROVASCULAR ACCIDENT [None]
  - PNEUMONITIS [None]
  - CHILLS [None]
  - WHITE BLOOD CELL COUNT ABNORMAL [None]
  - CEREBELLAR ISCHAEMIA [None]
